FAERS Safety Report 16584787 (Version 1)
Quarter: 2019Q3

REPORT INFORMATION
  Report Type: Spontaneous
  Country: GB (occurrence: GB)
  Receive Date: 20190717
  Receipt Date: 20190717
  Transmission Date: 20191004
  Serious: Yes (Other)
  Sender: FDA-Public Use
  Company Number: GB-MYLANLABS-2019M1066431

PATIENT
  Age: 67 Year
  Sex: Female

DRUGS (4)
  1. AZATHIOPRINE. [Suspect]
     Active Substance: AZATHIOPRINE
     Indication: BEHCET^S SYNDROME
     Dosage: UNK
  2. CYCLOPHOSPHAMIDE. [Suspect]
     Active Substance: CYCLOPHOSPHAMIDE
     Indication: BEHCET^S SYNDROME
     Dosage: UNK UNK, CYCLE,SIX CYCLE COURSE
     Route: 042
  3. PREDNISOLONE. [Suspect]
     Active Substance: PREDNISOLONE
     Indication: BEHCET^S SYNDROME
     Dosage: UNK
  4. WARFARIN [Concomitant]
     Active Substance: WARFARIN
     Indication: DEEP VEIN THROMBOSIS
     Dosage: UNK

REACTIONS (7)
  - Behcet^s syndrome [Recovering/Resolving]
  - Drug resistance [Recovering/Resolving]
  - Necrosis [Recovering/Resolving]
  - Ulcer [Recovering/Resolving]
  - Vasculitis [Recovering/Resolving]
  - Rash [Recovering/Resolving]
  - Septic vasculitis [Recovering/Resolving]
